FAERS Safety Report 14529419 (Version 4)
Quarter: 2018Q1

REPORT INFORMATION
  Report Type: Report from Study
  Country: JP (occurrence: JP)
  Receive Date: 20180214
  Receipt Date: 20180302
  Transmission Date: 20180509
  Serious: Yes (Hospitalization, Other)
  Sender: FDA-Public Use
  Company Number: JP-ROCHE-2070545

PATIENT
  Age: 82 Year
  Sex: Male
  Weight: 59 kg

DRUGS (26)
  1. BETAMETHASONE DIPROPIONATE. [Concomitant]
     Active Substance: BETAMETHASONE DIPROPIONATE
     Route: 062
     Dates: start: 20170304
  2. ASPIRIN/LANSOPRAZOLE [Concomitant]
     Route: 048
     Dates: start: 20151127, end: 20180108
  3. DIFLORASONE DIACETATE. [Concomitant]
     Active Substance: DIFLORASONE DIACETATE
     Route: 062
     Dates: start: 2014
  4. METFORMIN/VILDAGLIPTIN [Concomitant]
     Active Substance: METFORMIN\VILDAGLIPTIN
     Route: 048
     Dates: start: 20180218, end: 20180219
  5. LULICONAZOLE. [Concomitant]
     Active Substance: LULICONAZOLE
     Route: 062
     Dates: start: 20170529
  6. MYSER (JAPAN) [Concomitant]
     Route: 062
     Dates: start: 20171106
  7. LULICON [Concomitant]
     Active Substance: LULICONAZOLE
     Route: 062
     Dates: start: 20171120
  8. ENZALUTAMIDE [Suspect]
     Active Substance: ENZALUTAMIDE
     Indication: HORMONE-REFRACTORY PROSTATE CANCER
     Dosage: MOST RECENT DOSE 80 MG ON 01/FEB/2018 AT 9.00 AND 09/FEB/2018 AT 09:00
     Route: 048
     Dates: start: 20171026
  9. CELECOX [Concomitant]
     Active Substance: CELECOXIB
     Route: 048
     Dates: start: 20171203, end: 20180218
  10. AMLODIPINE BESILATE/IRBESARTAN [Concomitant]
     Active Substance: AMLODIPINE BESYLATE\IRBESARTAN
     Route: 048
     Dates: start: 20150928
  11. SODIUM FERROUS CITRATE [Concomitant]
     Active Substance: SODIUM FERROUS CITRATE
     Route: 048
     Dates: start: 20150127
  12. DAIPHEN [Concomitant]
     Active Substance: SULFAMETHOXAZOLE\TRIMETHOPRIM
     Route: 048
     Dates: start: 20171115, end: 20180125
  13. METFORMIN/VILDAGLIPTIN [Concomitant]
     Active Substance: METFORMIN\VILDAGLIPTIN
     Route: 048
     Dates: start: 20140623, end: 20180212
  14. ANTEBATE [Concomitant]
     Active Substance: BETAMETHASONE DIPROPIONATE
     Route: 062
     Dates: start: 20171106
  15. TALION (JAPAN) [Concomitant]
     Active Substance: BEPOTASTINE
     Route: 048
     Dates: start: 20171119
  16. PREDNISOLONE. [Concomitant]
     Active Substance: PREDNISOLONE
     Route: 048
     Dates: start: 20171214, end: 20180103
  17. SODIUM PICOSULFATE [Concomitant]
     Active Substance: SODIUM PICOSULFATE
     Route: 048
     Dates: start: 20180114, end: 20180114
  18. NEUROTROPIN (JAPAN) [Concomitant]
     Dosage: 16 UNITS?4 NU
     Route: 048
     Dates: start: 20171203, end: 20180218
  19. CRESTOR [Concomitant]
     Active Substance: ROSUVASTATIN CALCIUM
     Route: 048
     Dates: start: 20180217
  20. CLOPIDOGREL [Concomitant]
     Active Substance: CLOPIDOGREL BISULFATE
     Route: 048
     Dates: start: 20180216
  21. ATEZOLIZUMAB. [Suspect]
     Active Substance: ATEZOLIZUMAB
     Indication: HORMONE-REFRACTORY PROSTATE CANCER
     Dosage: MOST RECENT DOSE ON 25/JAN/2018 AT 11.49
     Route: 042
     Dates: start: 20171026
  22. ASPIRIN/LANSOPRAZOLE [Concomitant]
     Route: 048
     Dates: start: 20180116
  23. HEPARINOID [Concomitant]
     Active Substance: CHONDROITIN SULFATE (BOVINE)
     Route: 062
     Dates: start: 20180220
  24. MOSAPRIDE CITRATE [Concomitant]
     Active Substance: MOSAPRIDE CITRATE
     Dosage: MOSAPRIDE CITRATE HYDRATE
     Route: 048
     Dates: start: 20140623
  25. MAGNESIUM OXIDE. [Concomitant]
     Active Substance: MAGNESIUM OXIDE
     Route: 048
     Dates: start: 20140623
  26. PREDNISOLONE. [Concomitant]
     Active Substance: PREDNISOLONE
     Route: 048
     Dates: start: 20180104

REACTIONS (2)
  - Cardiac failure [Not Recovered/Not Resolved]
  - Colon cancer [Not Recovered/Not Resolved]

NARRATIVE: CASE EVENT DATE: 20180115
